FAERS Safety Report 5582447-3 (Version None)
Quarter: 2007Q4

REPORT INFORMATION
  Report Type: 
  Country: None (occurrence: None)
  Receive Date: 20071130
  Receipt Date: 20061227
  Transmission Date: 20080405
  Serious: Yes (Other)
  Sender: FDA-Public Use
  Company Number: WAES 0612USA04040

PATIENT
  Age: 63 Year
  Sex: Female

DRUGS (2)
  1. FOSAMAX [Suspect]
     Indication: OSTEOPOROSIS
     Dosage: PO
     Route: 048
     Dates: start: 19970101, end: 20060709
  2. FOSAMAX PLUS D [Suspect]
     Indication: OSTEOPETROSIS
     Dates: start: 20020130, end: 20061219

REACTIONS (2)
  - OSTEONECROSIS [None]
  - PAPILLOMA VIRAL INFECTION [None]
